FAERS Safety Report 9971055 (Version 2)
Quarter: 2014Q1

REPORT INFORMATION
  Report Type: Report from Study
  Country: US (occurrence: US)
  Receive Date: 20140306
  Receipt Date: 20140306
  Transmission Date: 20141002
  Serious: No
  Sender: FDA-Public Use
  Company Number: US-ABBVIE-13P-163-1127271-00

PATIENT
  Age: 54 Year
  Sex: Female

DRUGS (9)
  1. HUMIRA [Suspect]
     Indication: CROHN^S DISEASE
     Dosage: LOADING DOSE ONLY
     Dates: start: 20130726, end: 20130726
  2. HUMIRA [Suspect]
  3. TRAZODONE [Concomitant]
     Indication: ANXIETY
     Route: 048
  4. TRAZODONE [Concomitant]
     Indication: INSOMNIA
  5. BALSALAZIDE [Concomitant]
     Indication: CROHN^S DISEASE
     Route: 048
  6. IBUPROFEN [Concomitant]
     Indication: DYSMENORRHOEA
     Dosage: OVER THE COUNTER
     Route: 048
  7. CODEINE [Concomitant]
     Indication: PAIN
     Dosage: ALTERNATING MORPHINE 60 MG PO EVERY 6 HRS, PRN
     Route: 048
  8. MORPHINE [Concomitant]
     Indication: PAIN
     Dosage: ALTERNATING WITH CODEINE 750 MG PO EVERY 6 HRS, PRN
     Route: 048
  9. CALMOSEPTINE [Concomitant]
     Indication: PRODUCT USED FOR UNKNOWN INDICATION
     Dosage: TO PERIANAL AREA

REACTIONS (4)
  - Anal pruritus [Not Recovered/Not Resolved]
  - Injection site pain [Recovered/Resolved]
  - Injection site pain [Not Recovered/Not Resolved]
  - Skin hypertrophy [Not Recovered/Not Resolved]
